FAERS Safety Report 5471132-4 (Version None)
Quarter: 2007Q3

REPORT INFORMATION
  Report Type: 
  Country: None (occurrence: None)
  Receive Date: 20070925
  Receipt Date: 20070910
  Transmission Date: 20080115
  Serious: Yes (Hospitalization)
  Sender: FDA-Public Use
  Company Number: 2007BI019324

PATIENT
  Age: 54 Year
  Sex: Female
  Weight: 86.1834 kg

DRUGS (1)
  1. NATALIZUMAB [Suspect]
     Indication: MULTIPLE SCLEROSIS
     Dosage: 300 MG;QM;IV
     Route: 042
     Dates: start: 20060901

REACTIONS (4)
  - FALL [None]
  - GROIN PAIN [None]
  - INFUSION SITE PAIN [None]
  - PELVIC FRACTURE [None]
